FAERS Safety Report 10192356 (Version 1)
Quarter: 2014Q2

REPORT INFORMATION
  Report Type: Spontaneous
  Country: US (occurrence: None)
  Receive Date: 20140523
  Receipt Date: 20140523
  Transmission Date: 20141212
  Serious: Yes (Other)
  Sender: FDA-Public Use
  Company Number: None

PATIENT
  Age: 20 Month
  Sex: Female
  Weight: 9.53 kg

DRUGS (1)
  1. HEMP MED EX: RSHO BLUE, GOLD [Suspect]
     Dosage: 20 ML HALF ML PER DAY
     Dates: start: 20140408, end: 20140414

REACTIONS (5)
  - Hypersomnia [None]
  - Fatigue [None]
  - Diarrhoea [None]
  - Vomiting [None]
  - Product formulation issue [None]
